FAERS Safety Report 19816304 (Version 1)
Quarter: 2021Q3

REPORT INFORMATION
  Report Type: Report from Study
  Country: BR (occurrence: BR)
  Receive Date: 20210910
  Receipt Date: 20210910
  Transmission Date: 20211014
  Serious: Yes (Other)
  Sender: FDA-Public Use
  Company Number: NVSC2019BR096964

PATIENT
  Age: 48 Year
  Sex: Female
  Weight: 80 kg

DRUGS (13)
  1. FEMARA [Suspect]
     Active Substance: LETROZOLE
     Dosage: UNK
     Route: 065
  2. FASLODEX [Concomitant]
     Active Substance: FULVESTRANT
     Indication: PRODUCT USED FOR UNKNOWN INDICATION
     Dosage: EVERY 15 DAYS
     Route: 065
     Dates: start: 20210617
  3. KISQALI [Suspect]
     Active Substance: RIBOCICLIB
     Indication: BREAST CANCER METASTATIC
     Dosage: 3 DF, TID (THREE TABLETS PER DAY)
     Route: 065
     Dates: start: 20190725
  4. ZOLADEX [Concomitant]
     Active Substance: GOSERELIN ACETATE
     Dosage: UNK
     Route: 065
  5. KISQALI [Suspect]
     Active Substance: RIBOCICLIB
     Dosage: 3 DF, TID (THREE TABLETS PER DAY)
     Route: 065
     Dates: start: 20190725, end: 20210527
  6. FEMARA [Suspect]
     Active Substance: LETROZOLE
     Indication: HORMONE THERAPY
     Dosage: UNK
     Route: 065
     Dates: start: 20190726, end: 20210527
  7. CIPROFLOXACIN HYDROCHLORIDE. [Suspect]
     Active Substance: CIPROFLOXACIN HYDROCHLORIDE
     Indication: PRODUCT USED FOR UNKNOWN INDICATION
     Dosage: UNK
     Route: 065
     Dates: start: 20191205
  8. XGEVA [Concomitant]
     Active Substance: DENOSUMAB
     Indication: BONE DISORDER
     Dosage: UNK, QMO
     Route: 065
     Dates: start: 201907, end: 20210527
  9. ALPELISIB [Concomitant]
     Active Substance: ALPELISIB
     Indication: PRODUCT USED FOR UNKNOWN INDICATION
     Dosage: 250 MG, QD
     Route: 048
     Dates: start: 20210618
  10. KISQALI [Suspect]
     Active Substance: RIBOCICLIB
     Dosage: UNK
     Route: 065
     Dates: start: 201906
  11. KISQALI [Suspect]
     Active Substance: RIBOCICLIB
     Dosage: 3 DF, TID (THREE TABLETS PER DAY)
     Route: 065
     Dates: start: 20190726
  12. ZOLADEX [Concomitant]
     Active Substance: GOSERELIN ACETATE
     Indication: PRODUCT USED FOR UNKNOWN INDICATION
     Dosage: UNK, Q3MO
     Route: 065
     Dates: start: 201907, end: 20210527
  13. XGEVA [Concomitant]
     Active Substance: DENOSUMAB
     Dosage: UNK
     Route: 065

REACTIONS (74)
  - Vaginal haemorrhage [Recovered/Resolved]
  - Neutropenia [Unknown]
  - Febrile neutropenia [Recovered/Resolved]
  - Madarosis [Unknown]
  - Hormone level abnormal [Unknown]
  - Sensory loss [Unknown]
  - Crying [Unknown]
  - Gene mutation [Unknown]
  - Blood triglycerides increased [Unknown]
  - Breast swelling [Recovered/Resolved]
  - Diarrhoea [Recovered/Resolved]
  - Faeces soft [Unknown]
  - Blood pressure increased [Unknown]
  - Application site injury [Recovered/Resolved]
  - Application site discolouration [Recovered/Resolved]
  - Infection [Unknown]
  - Abdominal pain [Unknown]
  - Therapy non-responder [Unknown]
  - Tinnitus [Recovered/Resolved]
  - Dry mouth [Recovered/Resolved]
  - Pruritus [Unknown]
  - Tumour inflammation [Unknown]
  - Insomnia [Recovered/Resolved]
  - Menstrual disorder [Recovered/Resolved]
  - Weight decreased [Unknown]
  - Erythema [Recovered/Resolved]
  - Breast swelling [Unknown]
  - Cardiac disorder [Unknown]
  - Vision blurred [Recovered/Resolved]
  - Breast cancer metastatic [Unknown]
  - Hair growth abnormal [Unknown]
  - Asthenia [Unknown]
  - Swelling [Unknown]
  - Feeling abnormal [Unknown]
  - Breast pain [Unknown]
  - Platelet count decreased [Unknown]
  - Abdominal pain [Recovered/Resolved]
  - Blood glucose increased [Recovered/Resolved]
  - Ear pain [Recovered/Resolved]
  - Skin exfoliation [Recovered/Resolved]
  - Pain [Unknown]
  - Polymerase chain reaction positive [Recovered/Resolved]
  - Malaise [Recovered/Resolved]
  - Feeling cold [Recovered/Resolved]
  - Headache [Recovering/Resolving]
  - Headache [Recovered/Resolved]
  - Hyperhidrosis [Recovered/Resolved]
  - Pain [Recovered/Resolved]
  - Fatigue [Unknown]
  - Iron deficiency [Unknown]
  - Feeling hot [Recovered/Resolved]
  - Application site oedema [Recovered/Resolved]
  - Anal incontinence [Recovered/Resolved]
  - Mood altered [Unknown]
  - Neoplasm recurrence [Unknown]
  - Decreased immune responsiveness [Recovered/Resolved]
  - Alopecia [Unknown]
  - Weight increased [Unknown]
  - Menstrual disorder [Recovered/Resolved]
  - Nervousness [Unknown]
  - Burning sensation [Recovered/Resolved]
  - Abdominal pain upper [Recovered/Resolved]
  - Vision blurred [Recovered/Resolved]
  - Blood cholesterol increased [Unknown]
  - Nodule [Unknown]
  - Bone neoplasm [Recovered/Resolved]
  - Malignant neoplasm progression [Unknown]
  - Menstrual disorder [Recovered/Resolved]
  - Breast swelling [Recovered/Resolved]
  - Erythema [Unknown]
  - Anaemia [Recovered/Resolved]
  - Pyrexia [Recovered/Resolved]
  - Vision blurred [Recovered/Resolved]
  - Irritability [Unknown]

NARRATIVE: CASE EVENT DATE: 20191204
